FAERS Safety Report 7702290-6 (Version None)
Quarter: 2011Q3

REPORT INFORMATION
  Report Type: 
  Country: None (occurrence: None)
  Receive Date: 20110822
  Receipt Date: 20110818
  Transmission Date: 20111222
  Serious: Yes (Other)
  Sender: FDA-Public Use
  Company Number: FR-PFIZER INC-2011190281

PATIENT
  Age: 63 Year
  Sex: Male

DRUGS (2)
  1. MEDROL [Suspect]
     Indication: DENTAL CARE
     Dosage: UNK
     Dates: end: 20110701
  2. AMOXICILLIN TRIHYDRATE [Concomitant]
     Indication: INFECTION PROPHYLAXIS
     Dosage: UNK
     Dates: end: 20110701

REACTIONS (1)
  - TENDONITIS [None]
